FAERS Safety Report 13544321 (Version 1)
Quarter: 2017Q2

REPORT INFORMATION
  Report Type: Spontaneous
  Country: US (occurrence: US)
  Receive Date: 20170512
  Receipt Date: 20170512
  Transmission Date: 20170830
  Serious: Yes (Disabling)
  Sender: FDA-Public Use
  Company Number: None

PATIENT
  Age: 55 Year
  Sex: Female
  Weight: 69.46 kg

DRUGS (6)
  1. MULTI VIT. [Concomitant]
  2. DYSPORT [Suspect]
     Active Substance: ABOBOTULINUMTOXINA
     Indication: MUSCLE RELAXANT THERAPY
     Dates: start: 20170228, end: 20170228
  3. PROBIOTIC [Concomitant]
     Active Substance: PROBIOTICS NOS
  4. OMEGA 3/6/9 [Concomitant]
  5. VITAMIN D3 [Concomitant]
     Active Substance: CHOLECALCIFEROL
  6. BENAZAPRIL/HCTZ [Concomitant]

REACTIONS (20)
  - Vision blurred [None]
  - Chest discomfort [None]
  - Musculoskeletal stiffness [None]
  - Neck pain [None]
  - Chest pain [None]
  - Arthralgia [None]
  - Blood pressure increased [None]
  - Eyelid ptosis [None]
  - Insomnia [None]
  - Pelvic pain [None]
  - Fear [None]
  - Lacrimation increased [None]
  - Headache [None]
  - Bladder discomfort [None]
  - Constipation [None]
  - Fatigue [None]
  - Dizziness [None]
  - Dyspnoea [None]
  - Back pain [None]
  - Panic attack [None]

NARRATIVE: CASE EVENT DATE: 20170202
